FAERS Safety Report 18486536 (Version 1)
Quarter: 2020Q4

REPORT INFORMATION
  Report Type: Spontaneous
  Country: US (occurrence: US)
  Receive Date: 20201110
  Receipt Date: 20201110
  Transmission Date: 20210114
  Serious: Yes (Hospitalization, Other)
  Sender: FDA-Public Use
  Company Number: US-AMGEN-USASP2020178323

PATIENT
  Age: 87 Year
  Sex: Female

DRUGS (3)
  1. EPOGEN [Suspect]
     Active Substance: ERYTHROPOIETIN
     Indication: NEPHROGENIC ANAEMIA
     Dosage: 2000 INTERNATIONAL UNIT PER MILLILITRE
     Route: 065
     Dates: start: 201910
  2. EPOGEN [Suspect]
     Active Substance: ERYTHROPOIETIN
     Dosage: 6000 UNIT, 3 TIMES/WK
     Route: 065
  3. EPOGEN [Suspect]
     Active Substance: ERYTHROPOIETIN
     Dosage: 2000 INTERNATIONAL UNIT PER MILLILITRE
     Route: 065
     Dates: start: 201910

REACTIONS (3)
  - Haemoglobin decreased [Unknown]
  - Blood potassium increased [Unknown]
  - Product storage error [Unknown]

NARRATIVE: CASE EVENT DATE: 2020
